FAERS Safety Report 7297508-0 (Version None)
Quarter: 2011Q1

REPORT INFORMATION
  Report Type: 
  Country: None (occurrence: None)
  Receive Date: 20110216
  Receipt Date: 20110211
  Transmission Date: 20110831
  Serious: Yes (Other)
  Sender: FDA-Public Use
  Company Number: US-PFIZER INC-2010180383

PATIENT
  Sex: Female
  Weight: 54.422 kg

DRUGS (2)
  1. GEODON [Suspect]
     Indication: PSYCHOTIC DISORDER
     Dosage: 20 MG, 2X/DAY
     Route: 048
     Dates: start: 20101201, end: 20110106
  2. GEODON [Suspect]
     Indication: MOOD ALTERED

REACTIONS (3)
  - BLINDNESS TRANSIENT [None]
  - VISUAL IMPAIRMENT [None]
  - EXTRAPYRAMIDAL DISORDER [None]
